FAERS Safety Report 11147350 (Version 1)
Quarter: 2015Q2

REPORT INFORMATION
  Report Type: Report from Study
  Country: US (occurrence: US)
  Receive Date: 20150528
  Receipt Date: 20150528
  Transmission Date: 20150821
  Serious: Yes (Death)
  Sender: FDA-Public Use
  Company Number: US-TEVA-565562USA

PATIENT
  Age: 64 Year
  Sex: Male

DRUGS (3)
  1. BENDAMUSTINE HYDROCHLORIDE [Suspect]
     Active Substance: BENDAMUSTINE HYDROCHLORIDE
     Indication: LYMPHOMA
     Dosage: 198 MG, CYCLIC (C1D1)
     Route: 042
     Dates: start: 20150317, end: 20150318
  2. BENDAMUSTINE HYDROCHLORIDE [Suspect]
     Active Substance: BENDAMUSTINE HYDROCHLORIDE
     Dosage: 189 MG, CYCLIC (C2D2)
     Route: 042
     Dates: start: 20150413
  3. RITUXIMAB [Suspect]
     Active Substance: RITUXIMAB
     Indication: LYMPHOMA
     Dosage: 800 MG, CYCLIC (C1D1)
     Route: 042
     Dates: start: 20150317

REACTIONS (1)
  - Death [Fatal]

NARRATIVE: CASE EVENT DATE: 20150515
